FAERS Safety Report 8094233-3 (Version None)
Quarter: 2012Q1

REPORT INFORMATION
  Report Type: 
  Country: None (occurrence: None)
  Receive Date: 20120131
  Receipt Date: 20120124
  Transmission Date: 20120608
  Serious: Yes (Hospitalization)
  Sender: FDA-Public Use
  Company Number: JP-JNJFOC-20120104858

PATIENT
  Age: 40 Year
  Sex: Male
  Weight: 57.2 kg

DRUGS (5)
  1. MAXACALCITOL [Concomitant]
     Route: 061
  2. DIFLUCORTOLONE VALERATE [Concomitant]
     Route: 061
  3. DICLOFENAC SODIUM [Concomitant]
     Indication: PAIN
  4. STELARA [Suspect]
     Indication: PSORIATIC ARTHROPATHY
     Route: 058
     Dates: start: 20111227
  5. LANSOPRAZOLE [Concomitant]

REACTIONS (1)
  - CHOLECYSTITIS [None]
